FAERS Safety Report 6235212-8 (Version None)
Quarter: 2009Q2

REPORT INFORMATION
  Report Type: 
  Country: None (occurrence: None)
  Receive Date: 20090618
  Receipt Date: 20090611
  Transmission Date: 20091009
  Serious: Yes (Disabling)
  Sender: FDA-Public Use
  Company Number: US-WYE-H09720509

PATIENT
  Sex: Female
  Weight: 69.46 kg

DRUGS (17)
  1. PRISTIQ [Suspect]
     Route: 048
  2. METOCLOPRAMIDE HYDROCHLORIDE [Concomitant]
     Dosage: UNKNOWN
  3. LYRICA [Concomitant]
     Dosage: 75 MG, UNSPECIFIED FREQUENCY
  4. DIOVAN [Concomitant]
     Dosage: 320/12.5, UNSPECIFIED FREQUENCY
  5. LANTUS [Concomitant]
     Dosage: 100 ML, UNSPECIFIED FREQUENCY
  6. METFORMIN HCL [Concomitant]
     Dosage: 500 MG , UNSPECIFIED FREQUENCY
  7. ASCORBIC ACID [Concomitant]
     Dosage: UNKNOWN
  8. CALCIUM [Concomitant]
     Dosage: UNKNOWN
  9. MAGNESIUM SULFATE [Concomitant]
     Dosage: UNKNOWN
  10. ERGOCALCIFEROL [Concomitant]
     Dosage: UNKNOWN
  11. PLAVIX [Concomitant]
     Dosage: 75 MG, UNSPECIFIED FREQUENCY
  12. VYTORIN [Concomitant]
     Dosage: 10/10 , UNSPECIFIED FREQUENCY
  13. TOCOPHEROL CONCENTRATE CAP [Concomitant]
     Dosage: UNKNOWN
  14. BETHANECHOL CHLORIDE [Concomitant]
     Dosage: 10 MG, UNSPECIFIED FREQUENCY
  15. CILOSTAZOL [Concomitant]
     Dosage: 50 MG, UNSPECIFIED FREQUENCY
  16. KLOR-CON [Concomitant]
     Dosage: 10 MG, UNSPECIFIED FREQUENCY
  17. TOPROL-XL [Concomitant]
     Dosage: 50 MG, UNSPECIFIED FREQUENCY

REACTIONS (3)
  - DIZZINESS [None]
  - FALL [None]
  - HUMERUS FRACTURE [None]
